FAERS Safety Report 24368114 (Version 3)
Quarter: 2024Q4

REPORT INFORMATION
  Report Type: Spontaneous
  Country: TR (occurrence: TR)
  Receive Date: 20240926
  Receipt Date: 20241014
  Transmission Date: 20250115
  Serious: Yes (Death, Other)
  Sender: MERCK
  Company Number: TR-009507513-2409TUR001239

PATIENT
  Sex: Female

DRUGS (2)
  1. KEYTRUDA [Suspect]
     Active Substance: PEMBROLIZUMAB
     Indication: Bladder cancer
     Dosage: UNK
     Dates: start: 20240820
  2. PADCEV [Suspect]
     Active Substance: ENFORTUMAB VEDOTIN-EJFV
     Indication: Bladder cancer
     Dosage: UNK
     Dates: start: 20240820, end: 20240827

REACTIONS (3)
  - Toxic epidermal necrolysis [Fatal]
  - Rash [Fatal]
  - Mental disorder [Unknown]

NARRATIVE: CASE EVENT DATE: 20240101
